FAERS Safety Report 8423383-4 (Version None)
Quarter: 2012Q2

REPORT INFORMATION
  Report Type: 
  Country: None (occurrence: None)
  Receive Date: 20120608
  Receipt Date: 20120525
  Transmission Date: 20120825
  Serious: Yes (Other)
  Sender: FDA-Public Use
  Company Number: CHPA2012US011472

PATIENT
  Age: 73 Year
  Sex: Female

DRUGS (4)
  1. EXCEDRIN EXTRA STRENGTH TABLETS [Suspect]
     Indication: PAIN
     Dosage: 2 DF, PER DAY
     Route: 048
     Dates: start: 19920101
  2. ACETAMINOPHEN [Concomitant]
     Dosage: UNK, UNK
     Route: 048
  3. ASPIRIN [Concomitant]
     Dosage: UNK, UNK
  4. EXCEDRIN EXTRA STRENGTH TABLETS [Suspect]
     Dosage: UNK, UNK
     Route: 048
     Dates: start: 19650101, end: 19920101

REACTIONS (8)
  - DEAFNESS [None]
  - OSTEOARTHRITIS [None]
  - VOMITING [None]
  - MYOCARDIAL INFARCTION [None]
  - RHEUMATOID ARTHRITIS [None]
  - INCORRECT DRUG ADMINISTRATION DURATION [None]
  - HEADACHE [None]
  - ABDOMINAL DISCOMFORT [None]
